FAERS Safety Report 23898701 (Version 1)
Quarter: 2024Q2

REPORT INFORMATION
  Report Type: Spontaneous
  Country: CA (occurrence: CA)
  Receive Date: 20240525
  Receipt Date: 20240525
  Transmission Date: 20240716
  Serious: Yes (Other)
  Sender: FDA-Public Use
  Company Number: CA-PFIZER INC-202400171614

PATIENT

DRUGS (8)
  1. INFLECTRA [Suspect]
     Active Substance: INFLIXIMAB-DYYB
     Indication: Colitis ulcerative
     Dosage: 5 MG/KG, EVERY 6 WEEKS, ROUND TO NEAREST VIAL
     Route: 042
     Dates: start: 20240405
  2. INFLECTRA [Suspect]
     Active Substance: INFLIXIMAB-DYYB
     Dosage: 5 MG/KG (470MG), EVERY 6 WEEKS, ROUND TO NEAREST VIAL
     Route: 042
     Dates: start: 20240517
  3. AZELAIC ACID [Concomitant]
     Active Substance: AZELAIC ACID
     Dosage: 50 MG, 1X/DAY
     Route: 065
     Dates: start: 20200218
  4. CALCIUM [Concomitant]
     Active Substance: CALCIUM
     Dosage: 1 DF, 2X/DAY
     Route: 065
  5. METHYLPREDNISOLONE [Concomitant]
     Active Substance: METHYLPREDNISOLONE
     Dosage: 1 DF
     Route: 065
  6. MOCLOBEMIDE [Concomitant]
     Active Substance: MOCLOBEMIDE
     Dosage: 75 MG, 2X/DAY
     Route: 048
  7. PREDNISONE [Concomitant]
     Active Substance: PREDNISONE
     Dosage: 1 DF
     Route: 048
     Dates: start: 20200218
  8. CHOLECALCIFEROL [Concomitant]
     Active Substance: CHOLECALCIFEROL
     Dosage: 1 DF, WEEKLY
     Route: 065

REACTIONS (1)
  - Prostate cancer [Unknown]
